FAERS Safety Report 10438433 (Version 1)
Quarter: 2014Q3

REPORT INFORMATION
  Report Type: Spontaneous
  Country: US (occurrence: None)
  Receive Date: 20140905
  Receipt Date: 20140905
  Transmission Date: 20150326
  Serious: No
  Sender: FDA-Public Use
  Company Number: None

PATIENT
  Age: 74 Year
  Sex: Female

DRUGS (2)
  1. SOVALDI [Suspect]
     Active Substance: SOFOSBUVIR
     Indication: PRODUCT USED FOR UNKNOWN INDICATION
     Route: 048
     Dates: start: 20140327, end: 20140901
  2. RIBASPHERE RIBAPAK [Suspect]
     Active Substance: RIBAVIRIN
     Indication: PRODUCT USED FOR UNKNOWN INDICATION
     Dosage: 1000MG, UD, PO
     Route: 048
     Dates: start: 20140327, end: 20140901

REACTIONS (13)
  - Aphasia [None]
  - Arthralgia [None]
  - Chills [None]
  - Pain [None]
  - Insomnia [None]
  - Anger [None]
  - Malaise [None]
  - Crying [None]
  - Rash [None]
  - Fatigue [None]
  - Visual impairment [None]
  - Pneumonia [None]
  - Diarrhoea [None]

NARRATIVE: CASE EVENT DATE: 20140630
